FAERS Safety Report 14335272 (Version 2)
Quarter: 2018Q2

REPORT INFORMATION
  Report Type: Spontaneous
  Country: US (occurrence: US)
  Receive Date: 20171229
  Receipt Date: 20180418
  Transmission Date: 20180711
  Serious: Yes (Other)
  Sender: FDA-Public Use
  Company Number: US-BRISTOL-MYERS SQUIBB COMPANY-BMS-2017-119213

PATIENT
  Sex: Male

DRUGS (1)
  1. SPRYCEL [Suspect]
     Active Substance: DASATINIB
     Indication: PRODUCT USED FOR UNKNOWN INDICATION
     Dosage: 100 MG, QD
     Route: 048
     Dates: start: 20160904

REACTIONS (7)
  - Gastric disorder [Unknown]
  - Diverticulitis [Unknown]
  - Drug intolerance [Unknown]
  - Infection [Unknown]
  - Bacterial infection [Unknown]
  - Pulmonary oedema [Unknown]
  - Clostridium difficile infection [Unknown]
